FAERS Safety Report 14605374 (Version 3)
Quarter: 2018Q1

REPORT INFORMATION
  Report Type: Spontaneous
  Country: JP (occurrence: JP)
  Receive Date: 20180306
  Receipt Date: 20180330
  Transmission Date: 20180509
  Serious: Yes (Hospitalization, Other)
  Sender: FDA-Public Use
  Company Number: JP-GILEAD-2018-0320872

PATIENT
  Age: 48 Year
  Sex: Male

DRUGS (4)
  1. VEMLIDY [Suspect]
     Active Substance: TENOFOVIR ALAFENAMIDE FUMARATE
     Indication: HEPATITIS B
     Dosage: 25 MG/DAY
     Route: 048
     Dates: end: 20180211
  2. VEMLIDY [Suspect]
     Active Substance: TENOFOVIR ALAFENAMIDE FUMARATE
     Dosage: 25 MG, UNK
     Route: 065
     Dates: start: 20180212, end: 20180221
  3. TENOFOVIR DISOPROXIL FUMARATE. [Concomitant]
     Active Substance: TENOFOVIR DISOPROXIL FUMARATE
     Dosage: UNK
     Dates: start: 20180222
  4. RIVASTACH [Concomitant]
     Active Substance: RIVASTIGMINE

REACTIONS (5)
  - Disseminated intravascular coagulation [Recovering/Resolving]
  - Altered state of consciousness [Not Recovered/Not Resolved]
  - Pneumonia aspiration [Unknown]
  - Wrong technique in product usage process [Recovered/Resolved]
  - Tonic convulsion [Recovering/Resolving]

NARRATIVE: CASE EVENT DATE: 20180212
